FAERS Safety Report 7331654-8 (Version None)
Quarter: 2011Q1

REPORT INFORMATION
  Report Type: 
  Country: None (occurrence: None)
  Receive Date: 20110304
  Receipt Date: 20110222
  Transmission Date: 20110831
  Serious: Yes (Hospitalization)
  Sender: FDA-Public Use
  Company Number: SE-SANOFI-AVENTIS-2011SA011159

PATIENT
  Age: 75 Year
  Sex: Male

DRUGS (3)
  1. BISOPROLOL FUMARATE [Concomitant]
  2. MULTAQ [Suspect]
     Indication: ATRIAL FIBRILLATION
     Route: 048
     Dates: start: 20101201, end: 20101229
  3. TINZAPARIN SODIUM [Concomitant]

REACTIONS (7)
  - RENAL FAILURE ACUTE [None]
  - DECREASED APPETITE [None]
  - BALANCE DISORDER [None]
  - BLOOD CREATININE INCREASED [None]
  - GENERAL PHYSICAL HEALTH DETERIORATION [None]
  - FATIGUE [None]
  - HYPERKALAEMIA [None]
